FAERS Safety Report 7883171-4 (Version None)
Quarter: 2011Q4

REPORT INFORMATION
  Report Type: 
  Country: None (occurrence: None)
  Receive Date: 20111101
  Receipt Date: 20111101
  Transmission Date: 20120403
  Serious: Yes (Hospitalization)
  Sender: FDA-Public Use
  Company Number: None

PATIENT
  Sex: Female
  Weight: 84.1 kg

DRUGS (19)
  1. VINCRISTINE SULFATE [Suspect]
     Dosage: 3.12 MG
  2. OMEPRAZOLE [Concomitant]
  3. METOPROLOL TARTRATE [Concomitant]
  4. PROMETHAZINE [Concomitant]
  5. TRIMETHOPRIM + SULFAMETHOXAZOLE [Concomitant]
  6. DOXORUBICIN HCL [Suspect]
     Dosage: 76 MG
  7. VALACYCLOVIR [Concomitant]
  8. CYCLOPHOSPHAMIDE [Suspect]
     Dosage: 1455 MG
  9. PREDNISONE [Suspect]
     Dosage: 1150 MG
  10. AMLODIPINE [Concomitant]
  11. FLUCONAZOLE [Concomitant]
  12. RITUXIMAB (MOAB C2B8 ANTI CD20,CHIMERIC) [Suspect]
     Dosage: 730 MG
  13. INSULIN [Concomitant]
  14. OXYCODONE HCL [Concomitant]
  15. DOXORUBICIN HCL [Suspect]
  16. LEVOFLOXACIN [Concomitant]
  17. SENNA/DOCUSATE [Concomitant]
  18. ETOPOSIDE [Suspect]
     Dosage: 388 MG
  19. ETOPOSIDE [Suspect]

REACTIONS (1)
  - FEBRILE NEUTROPENIA [None]
